FAERS Safety Report 9465323 (Version 1)
Quarter: 2013Q3

REPORT INFORMATION
  Report Type: Spontaneous
  Country: US (occurrence: US)
  Receive Date: 20130820
  Receipt Date: 20130820
  Transmission Date: 20140515
  Serious: Yes (Other)
  Sender: FDA-Public Use
  Company Number: US-AMGEN-USASP2013057150

PATIENT
  Age: 41 Year
  Sex: Female

DRUGS (1)
  1. ENBREL [Suspect]
     Indication: PSORIASIS
     Dosage: 50 MG, QWK
     Route: 065
     Dates: start: 20081102

REACTIONS (4)
  - Cervix carcinoma [Recovered/Resolved]
  - Papilloma viral infection [Recovered/Resolved]
  - Melanocytic naevus [Not Recovered/Not Resolved]
  - Skin plaque [Not Recovered/Not Resolved]
